FAERS Safety Report 9602174 (Version 1)
Quarter: 2013Q4

REPORT INFORMATION
  Report Type: Spontaneous
  Country: GB (occurrence: None)
  Receive Date: 20131003
  Receipt Date: 20131003
  Transmission Date: 20140711
  Serious: Yes (Hospitalization, Other)
  Sender: FDA-Public Use
  Company Number: GB-ALKEM-000167

PATIENT
  Age: 80 Year
  Sex: Female

DRUGS (3)
  1. CEPHALEXIN [Suspect]
     Indication: URINARY TRACT INFECTION
     Dosage: 2.00 TIMER PER 1.0DAYS
     Route: 048
     Dates: start: 20130725
  2. BISOPROLOL(BISOPROLOL) [Concomitant]
  3. WARFARIN(WARFARIN) [Concomitant]

REACTIONS (13)
  - Nervous system disorder [None]
  - Agitation [None]
  - Confusional state [None]
  - Dizziness [None]
  - Somnolence [None]
  - Headache [None]
  - Lethargy [None]
  - Pneumonia [None]
  - Syncope [None]
  - Pneumonia [None]
  - Encephalitis [None]
  - Meningitis [None]
  - CSF lymphocyte count increased [None]
